FAERS Safety Report 7779332-5 (Version None)
Quarter: 2011Q3

REPORT INFORMATION
  Report Type: 
  Country: None (occurrence: None)
  Receive Date: 20110926
  Receipt Date: 20110916
  Transmission Date: 20111222
  Serious: Yes (Other)
  Sender: FDA-Public Use
  Company Number: US-ASTRAZENECA-2011SE35831

PATIENT
  Age: 78 Year
  Sex: Male
  Weight: 72.6 kg

DRUGS (10)
  1. D3 [Concomitant]
     Dosage: 1000-2000 UNITS
  2. LOPRESSOR [Concomitant]
  3. LEXAPRO [Concomitant]
  4. SYMBICORT [Suspect]
     Indication: EMPHYSEMA
     Route: 055
  5. XANAX [Concomitant]
     Indication: ANXIETY
  6. LISINOPRIL [Concomitant]
  7. NIACIN [Concomitant]
  8. ASPIRIN [Concomitant]
  9. SEROQUEL [Suspect]
     Indication: DEPRESSION
     Route: 048
  10. SEROQUEL [Suspect]
     Indication: ANXIETY
     Route: 048

REACTIONS (3)
  - VISUAL ACUITY REDUCED [None]
  - BLINDNESS UNILATERAL [None]
  - CEREBROVASCULAR ACCIDENT [None]
